FAERS Safety Report 6785782-6 (Version None)
Quarter: 2010Q2

REPORT INFORMATION
  Report Type: 
  Country: None (occurrence: None)
  Receive Date: 20100622
  Receipt Date: 20100622
  Transmission Date: 20101027
  Serious: Yes (Other)
  Sender: FDA-Public Use
  Company Number: None

PATIENT
  Sex: Male
  Weight: 77.1115 kg

DRUGS (4)
  1. FUROSEMIDE [Suspect]
     Indication: CARDIAC FAILURE CONGESTIVE
     Dosage: 20 MG EVERY OTHER DAY PO (APPROX 3-4 YEARS AGO FOR 2-3 MONTHS)
     Route: 048
  2. FUROSEMIDE [Suspect]
     Indication: CORONARY ARTERY DISEASE
     Dosage: 20 MG EVERY OTHER DAY PO (APPROX 3-4 YEARS AGO FOR 2-3 MONTHS)
     Route: 048
  3. FUROSEMIDE [Suspect]
     Indication: HYPERTENSION
     Dosage: 20 MG EVERY OTHER DAY PO (APPROX 3-4 YEARS AGO FOR 2-3 MONTHS)
     Route: 048
  4. FUROSEMIDE [Suspect]
     Indication: PROSTATE CANCER
     Dosage: 20 MG EVERY OTHER DAY PO (APPROX 3-4 YEARS AGO FOR 2-3 MONTHS)
     Route: 048

REACTIONS (3)
  - CARDIAC FAILURE CONGESTIVE [None]
  - DYSURIA [None]
  - URINE OUTPUT DECREASED [None]
